FAERS Safety Report 5295413-2 (Version None)
Quarter: 2007Q2

REPORT INFORMATION
  Report Type: 
  Country: None (occurrence: None)
  Receive Date: 20070412
  Receipt Date: 20070403
  Transmission Date: 20071010
  Serious: Yes (Other)
  Sender: FDA-Public Use
  Company Number: SE-PFIZER INC-2007026770

PATIENT
  Sex: Female

DRUGS (3)
  1. CABASER [Suspect]
     Indication: RESTLESS LEGS SYNDROME
     Route: 048
  2. LEVODOPA BENSERAZIDE HYDROCHLO [Concomitant]
  3. CLONAZEPAM [Concomitant]

REACTIONS (2)
  - ARRHYTHMIA [None]
  - DYSPNOEA [None]
